FAERS Safety Report 13143953 (Version 2)
Quarter: 2017Q3

REPORT INFORMATION
  Report Type: Spontaneous
  Country: JP (occurrence: JP)
  Receive Date: 20170124
  Receipt Date: 20170815
  Transmission Date: 20171127
  Serious: Yes (Other)
  Sender: FDA-Public Use
  Company Number: JP-SA-2017SA010819

PATIENT
  Sex: Male

DRUGS (15)
  1. VECTIBIX [Concomitant]
     Active Substance: PANITUMUMAB
     Route: 042
     Dates: start: 20161026, end: 20161026
  2. VECTIBIX [Concomitant]
     Active Substance: PANITUMUMAB
     Route: 042
  3. 5-FU [Concomitant]
     Active Substance: FLUOROURACIL
     Route: 040
     Dates: start: 20160413, end: 20160413
  4. 5-FU [Concomitant]
     Active Substance: FLUOROURACIL
     Route: 042
     Dates: start: 20160413, end: 20160413
  5. 5-FU [Concomitant]
     Active Substance: FLUOROURACIL
     Route: 042
  6. 5-FU [Concomitant]
     Active Substance: FLUOROURACIL
     Route: 040
     Dates: start: 20161026, end: 20161026
  7. ELPLAT [Suspect]
     Active Substance: OXALIPLATIN
     Indication: COLON CANCER
     Route: 041
     Dates: start: 20160413, end: 20160413
  8. CALCIUM LEVOFOLINATE [Concomitant]
     Active Substance: LEVOLEUCOVORIN CALCIUM
     Route: 042
     Dates: start: 20160413, end: 20160413
  9. VECTIBIX [Concomitant]
     Active Substance: PANITUMUMAB
     Route: 042
     Dates: start: 20160413, end: 20160413
  10. ELPLAT [Suspect]
     Active Substance: OXALIPLATIN
     Indication: COLON CANCER
     Route: 041
  11. ELPLAT [Suspect]
     Active Substance: OXALIPLATIN
     Indication: COLON CANCER
     Route: 041
     Dates: start: 20161026, end: 20161026
  12. CALCIUM LEVOFOLINATE [Concomitant]
     Active Substance: LEVOLEUCOVORIN CALCIUM
     Route: 042
  13. CALCIUM LEVOFOLINATE [Concomitant]
     Active Substance: LEVOLEUCOVORIN CALCIUM
     Route: 042
     Dates: start: 20161026, end: 20161026
  14. 5-FU [Concomitant]
     Active Substance: FLUOROURACIL
     Route: 040
  15. 5-FU [Concomitant]
     Active Substance: FLUOROURACIL
     Route: 042
     Dates: start: 20161026, end: 20161026

REACTIONS (1)
  - Varices oesophageal [Not Recovered/Not Resolved]

NARRATIVE: CASE EVENT DATE: 20161004
